FAERS Safety Report 4907730-3 (Version None)
Quarter: 2006Q1

REPORT INFORMATION
  Report Type: 
  Country: None (occurrence: None)
  Receive Date: 20060208
  Receipt Date: 20060208
  Transmission Date: 20060701
  Serious: Yes (Hospitalization)
  Sender: FDA-Public Use
  Company Number: None

PATIENT
  Age: 79 Year
  Sex: Male

DRUGS (6)
  1. PREDNISONE [Suspect]
     Dates: start: 20051109
  2. OXYCODONE [Concomitant]
  3. METHOCARBAMOL [Concomitant]
  4. VITAMIN D [Concomitant]
  5. METOPROLOL [Concomitant]
  6. ISOSORBIDE [Concomitant]

REACTIONS (1)
  - GASTROINTESTINAL HAEMORRHAGE [None]
